FAERS Safety Report 18459833 (Version 1)
Quarter: 2020Q4

REPORT INFORMATION
  Report Type: Spontaneous
  Country: FR (occurrence: FR)
  Receive Date: 20201103
  Receipt Date: 20201103
  Transmission Date: 20210114
  Serious: Yes (Hospitalization)
  Sender: FDA-Public Use
  Company Number: FR-009507513-2010FRA010493

PATIENT
  Age: 33 Year
  Sex: Female
  Weight: 50 kg

DRUGS (4)
  1. ORGALUTRAN [Suspect]
     Active Substance: GANIRELIX ACETATE
     Indication: CONTROLLED OVARIAN STIMULATION
     Dosage: 250 MICROGRAM, QD, 0.25 MG/0.5 ML, SOLUTION INJECTABLE
     Route: 058
     Dates: start: 20200124, end: 20200129
  2. OROMONE [Concomitant]
     Active Substance: ESTRADIOL
     Dosage: UNK
  3. PUREGON (FOLITROPIN BETA) [Suspect]
     Active Substance: FOLLITROPIN
     Indication: CONTROLLED OVARIAN STIMULATION
     Dosage: 150 INTERNATIONAL UNIT, QD
     Route: 058
     Dates: start: 20200118, end: 20200128
  4. OVITRELLE [Suspect]
     Active Substance: CHORIOGONADOTROPIN ALFA
     Indication: OVULATION INDUCTION
     Dosage: 1 DOSAGE FORM, ONCE (1 TOTAL)
     Route: 058
     Dates: start: 20200129, end: 20200129

REACTIONS (3)
  - Pelvic fluid collection [Recovered/Resolved]
  - Abdominal pain [Recovered/Resolved]
  - Ovarian hyperstimulation syndrome [Recovered/Resolved]

NARRATIVE: CASE EVENT DATE: 20200201
